FAERS Safety Report 13332426 (Version 1)
Quarter: 2017Q1

REPORT INFORMATION
  Report Type: Spontaneous
  Country: US (occurrence: US)
  Receive Date: 20170313
  Receipt Date: 20170313
  Transmission Date: 20170428
  Serious: No
  Sender: FDA-Public Use
  Company Number: None

PATIENT
  Age: 63 Year
  Sex: Female

DRUGS (3)
  1. CLARITIN [Concomitant]
     Active Substance: LORATADINE
  2. SPRYCEL [Suspect]
     Active Substance: DASATINIB
     Indication: CHRONIC MYELOID LEUKAEMIA
  3. LOTENSIN [Concomitant]
     Active Substance: BENAZEPRIL HYDROCHLORIDE

REACTIONS (1)
  - Pleural effusion [None]

NARRATIVE: CASE EVENT DATE: 20170215
